FAERS Safety Report 12194447 (Version 1)
Quarter: 2016Q1

REPORT INFORMATION
  Report Type: Spontaneous
  Country: US (occurrence: US)
  Receive Date: 20160321
  Receipt Date: 20160321
  Transmission Date: 20160526
  Serious: Yes (Other)
  Sender: FDA-Public Use
  Company Number: PHEH2016US006686

PATIENT
  Sex: Male

DRUGS (2)
  1. TRILEPTAL [Suspect]
     Active Substance: OXCARBAZEPINE
     Indication: PAIN
     Dosage: 2400 MG, QD
     Route: 065
  2. TEGRETAL [Suspect]
     Active Substance: CARBAMAZEPINE
     Indication: PRODUCT USED FOR UNKNOWN INDICATION
     Dosage: UNK
     Route: 065

REACTIONS (7)
  - Ataxia [Unknown]
  - Hyponatraemia [Unknown]
  - Product use issue [Unknown]
  - Fall [Unknown]
  - Meniere^s disease [Unknown]
  - Vertigo [Unknown]
  - Arthralgia [Unknown]
